FAERS Safety Report 4821886-2 (Version None)
Quarter: 2005Q4

REPORT INFORMATION
  Report Type: 
  Country: None (occurrence: None)
  Receive Date: 20051103
  Receipt Date: 20051021
  Transmission Date: 20060501
  Serious: Yes (Death)
  Sender: FDA-Public Use
  Company Number: 2005145561

PATIENT
  Sex: Male

DRUGS (8)
  1. PREDNISONE [Suspect]
     Indication: ILL-DEFINED DISORDER
  2. COMBIVENT [Suspect]
     Indication: ILL-DEFINED DISORDER
     Dosage: INHALATION
     Route: 055
  3. ETIDRONIC ACID (ETIDRONIC ACID) [Suspect]
     Indication: ILL-DEFINED DISORDER
  4. FUROSEMIDE [Suspect]
     Indication: ILL-DEFINED DISORDER
  5. SERETIDE (FLUTICASONE PROPIONATE, SALMETEROL XINAFOATE) [Suspect]
     Indication: ILL-DEFINED DISORDER
     Dosage: INHALATION
     Route: 055
  6. THEOPHYLLINE [Suspect]
     Indication: ILL-DEFINED DISORDER
  7. VENTOLIN [Concomitant]
  8. THEOPHYLLINE [Concomitant]

REACTIONS (1)
  - CHRONIC OBSTRUCTIVE PULMONARY DISEASE [None]
